FAERS Safety Report 8573229-9 (Version None)
Quarter: 2012Q3

REPORT INFORMATION
  Report Type: 
  Country: None (occurrence: None)
  Receive Date: 20120806
  Receipt Date: 20120731
  Transmission Date: 20120928
  Serious: Yes (Death, Other)
  Sender: FDA-Public Use
  Company Number: US-PFIZER INC-2012140072

PATIENT
  Age: 82 Year
  Sex: Female
  Weight: 81.633 kg

DRUGS (1)
  1. REVATIO [Suspect]
     Indication: CARDIAC DISORDER
     Dosage: 40 MG, 3X/DAY

REACTIONS (1)
  - NEOPLASM MALIGNANT [None]
